FAERS Safety Report 6042870-X (Version None)
Quarter: 2009Q1

REPORT INFORMATION
  Report Type: 
  Country: None (occurrence: None)
  Receive Date: 20090119
  Receipt Date: 20090108
  Transmission Date: 20090719
  Serious: Yes (Other)
  Sender: FDA-Public Use
  Company Number: US-JNJFOC-20090101996

PATIENT
  Age: 30 Year
  Sex: Female
  Weight: 65.77 kg

DRUGS (4)
  1. TYLENOL COLD HEAD CONGESTION DAYTIME COOL BURST [Suspect]
     Route: 048
  2. TYLENOL COLD HEAD CONGESTION DAYTIME COOL BURST [Suspect]
     Indication: NASOPHARYNGITIS
     Route: 048
  3. OXCARBAZEPINE [Concomitant]
     Indication: CONVULSION
  4. LYRICA [Concomitant]
     Indication: CONVULSION

REACTIONS (3)
  - CONVULSION [None]
  - NERVOUSNESS [None]
  - PALLOR [None]
